FAERS Safety Report 15042225 (Version 1)
Quarter: 2018Q2

REPORT INFORMATION
  Report Type: Spontaneous
  Country: DE (occurrence: DE)
  Receive Date: 20180621
  Receipt Date: 20180621
  Transmission Date: 20180711
  Serious: Yes (Hospitalization)
  Sender: FDA-Public Use
  Company Number: DE-TEVA-2018-DE-911387

PATIENT
  Age: 72 Year
  Sex: Female

DRUGS (12)
  1. MICTONORM [Concomitant]
     Active Substance: PROPIVERINE HYDROCHLORIDE
     Dosage: NK MG, 1-0-0-0
     Route: 065
  2. METOPROLOL. [Concomitant]
     Active Substance: METOPROLOL
     Dosage: 1-0-1-0
  3. ENOXAPARIN [Concomitant]
     Active Substance: ENOXAPARIN
     Dosage: 1-0-1-0
  4. METAMIZOL [Concomitant]
     Active Substance: METAMIZOLE SODIUM
     Dosage: 2-2-2-2
  5. PREDNISOLON [Concomitant]
     Active Substance: PREDNISOLONE
     Dosage: 1-0-0-0
  6. OMEPRAZOL [Concomitant]
     Active Substance: OMEPRAZOLE
     Dosage: 0-0-1-0
  7. ASS 100 [Concomitant]
     Active Substance: ASPIRIN
     Dosage: 1-0-0-0
  8. VALSARTAN. [Suspect]
     Active Substance: VALSARTAN
     Dosage: 0.5-0-0-0
  9. IBUPROFEN. [Suspect]
     Active Substance: IBUPROFEN
     Dosage: 1-1-1-0
  10. LEVOTHYROXIN-NATRIUM [Concomitant]
     Active Substance: LEVOTHYROXINE SODIUM
     Dosage: 1-0-0-0
     Route: 065
  11. CEFPODOXIM [Suspect]
     Active Substance: CEFPODOXIME PROXETIL
     Dosage: 1-0-1 FOR 5 D
  12. ALLOPURINOL. [Concomitant]
     Active Substance: ALLOPURINOL
     Dosage: 1-0-0-0

REACTIONS (1)
  - Acute kidney injury [Unknown]

NARRATIVE: CASE EVENT DATE: 20170315
